FAERS Safety Report 6245530-5 (Version None)
Quarter: 2009Q2

REPORT INFORMATION
  Report Type: 
  Country: None (occurrence: None)
  Receive Date: 20090625
  Receipt Date: 20090622
  Transmission Date: 20091009
  Serious: Yes (Hospitalization, Other)
  Sender: FDA-Public Use
  Company Number: CH-ROXANE LABORATORIES, INC.-2009-RO-00601RO

PATIENT
  Age: 24 Year
  Sex: Male

DRUGS (7)
  1. PREDNISONE [Suspect]
     Indication: UVEITIS
     Route: 048
  2. PREDNISONE [Suspect]
  3. CYCLOSPORINE [Suspect]
     Indication: UVEITIS
  4. CYCLOSPORINE [Suspect]
     Dosage: 200 MG
  5. PYRIMETHAMINE [Concomitant]
     Indication: EYE INFECTION TOXOPLASMAL
  6. SULFADIAZINE [Concomitant]
     Indication: EYE INFECTION TOXOPLASMAL
  7. TRIMETHOPRIM-SULFAMETHOXAZOL [Concomitant]
     Indication: EYE INFECTION TOXOPLASMAL

REACTIONS (8)
  - CARDIOLIPIN ANTIBODY POSITIVE [None]
  - EYE INFECTION TOXOPLASMAL [None]
  - GRAND MAL CONVULSION [None]
  - HEPATITIS [None]
  - INTERSTITIAL LUNG DISEASE [None]
  - MYOSITIS [None]
  - PERICARDITIS [None]
  - PROTEINURIA [None]
